FAERS Safety Report 15621884 (Version 1)
Quarter: 2018Q4

REPORT INFORMATION
  Report Type: Report from Study
  Country: GB (occurrence: GB)
  Receive Date: 20181115
  Receipt Date: 20181115
  Transmission Date: 20190205
  Serious: Yes (Other)
  Sender: FDA-Public Use
  Company Number: GB-ROCHE-2212895

PATIENT
  Sex: Female

DRUGS (1)
  1. ROACTEMRA [Suspect]
     Active Substance: TOCILIZUMAB
     Indication: RHEUMATOID ARTHRITIS
     Route: 058
     Dates: start: 20180502

REACTIONS (6)
  - Pain [Unknown]
  - Paralysis [Unknown]
  - Nausea [Unknown]
  - Unevaluable event [Unknown]
  - Headache [Unknown]
  - Movement disorder [Unknown]
